FAERS Safety Report 8071119-1 (Version None)
Quarter: 2012Q1

REPORT INFORMATION
  Report Type: 
  Country: None (occurrence: None)
  Receive Date: 20120125
  Receipt Date: 20120111
  Transmission Date: 20120608
  Serious: Yes (Death, Life-Threatening, Hospitalization, Other)
  Sender: FDA-Public Use
  Company Number: ES-CELGENEUS-144-50794-12011218

PATIENT
  Sex: Male
  Weight: 76 kg

DRUGS (6)
  1. ENOXAPARIN [Concomitant]
     Dosage: 40 MILLIGRAM
     Route: 065
     Dates: start: 20100208, end: 20100322
  2. VIDAZA [Suspect]
     Dosage: 75 MILLIGRAM/SQ. METER
     Route: 058
     Dates: start: 20100301, end: 20100303
  3. LEVOCETIRIZINE DIHYDROCHLORIDE [Concomitant]
     Indication: ECZEMA NUMMULAR
     Dosage: 10 MILLIGRAM
     Route: 065
  4. OMEPRAZOLE [Concomitant]
     Indication: PROPHYLAXIS
     Dosage: 20 MILLIGRAM
     Route: 065
     Dates: start: 20100301
  5. ESPIRONOLACTONE [Concomitant]
     Dosage: 25 MILLIGRAM
     Route: 065
     Dates: start: 20100224, end: 20100322
  6. HYDROXYUREA [Concomitant]
     Route: 065

REACTIONS (5)
  - HAEMORRHAGE INTRACRANIAL [None]
  - SYSTEMIC INFLAMMATORY RESPONSE SYNDROME [None]
  - URINARY TRACT INFECTION PSEUDOMONAL [None]
  - FEBRILE NEUTROPENIA [None]
  - THROMBOCYTOPENIA [None]
